FAERS Safety Report 11829684 (Version 3)
Quarter: 2016Q1

REPORT INFORMATION
  Report Type: Spontaneous
  Country: US (occurrence: US)
  Receive Date: 20151212
  Receipt Date: 20160128
  Transmission Date: 20160525
  Serious: Yes (Disabling, Other)
  Sender: FDA-Public Use
  Company Number: US-ASTRAZENECA-2014SE14628

PATIENT
  Age: 477 Month
  Sex: Female
  Weight: 124.3 kg

DRUGS (16)
  1. PREDNISONE. [Concomitant]
     Active Substance: PREDNISONE
  2. HYDROCHLOROTHIAZIDE. [Concomitant]
     Active Substance: HYDROCHLOROTHIAZIDE
  3. CRESTOR [Suspect]
     Active Substance: ROSUVASTATIN CALCIUM
     Indication: BLOOD CHOLESTEROL INCREASED
     Route: 048
  4. JANUVIA [Concomitant]
     Active Substance: SITAGLIPTIN PHOSPHATE
  5. NEXIUM [Concomitant]
     Active Substance: ESOMEPRAZOLE MAGNESIUM
  6. MICRONASE [Concomitant]
     Active Substance: GLYBURIDE
  7. ZYLOPRIM [Concomitant]
     Active Substance: ALLOPURINOL
  8. RISPERDAL [Concomitant]
     Active Substance: RISPERIDONE
  9. PROTONIX [Concomitant]
     Active Substance: PANTOPRAZOLE SODIUM
  10. DITROPAN [Concomitant]
     Active Substance: OXYBUTYNIN CHLORIDE
  11. DIOVAN [Concomitant]
     Active Substance: VALSARTAN
  12. VALIUM [Concomitant]
     Active Substance: DIAZEPAM
  13. COZAAR [Concomitant]
     Active Substance: LOSARTAN POTASSIUM
  14. CRESTOR [Suspect]
     Active Substance: ROSUVASTATIN CALCIUM
     Indication: BLOOD CHOLESTEROL INCREASED
     Route: 048
     Dates: start: 199001
  15. METOPROLOL. [Concomitant]
     Active Substance: METOPROLOL
     Dates: start: 199001
  16. XANAX [Concomitant]
     Active Substance: ALPRAZOLAM

REACTIONS (16)
  - Asthma [Not Recovered/Not Resolved]
  - Type 1 diabetes mellitus [Unknown]
  - Cerebrovascular accident [Unknown]
  - Emotional distress [Not Recovered/Not Resolved]
  - Rhabdomyolysis [Not Recovered/Not Resolved]
  - Osteoarthritis [Not Recovered/Not Resolved]
  - Hypertension [Not Recovered/Not Resolved]
  - Angina pectoris [Unknown]
  - Gestational diabetes [Unknown]
  - Osteoporosis [Not Recovered/Not Resolved]
  - Type 2 diabetes mellitus [Not Recovered/Not Resolved]
  - Arrhythmia [Unknown]
  - Cardiomyopathy [Unknown]
  - Blood triglycerides increased [Unknown]
  - Chronic obstructive pulmonary disease [Not Recovered/Not Resolved]
  - Obesity [Not Recovered/Not Resolved]

NARRATIVE: CASE EVENT DATE: 199001
